FAERS Safety Report 12701048 (Version 2)
Quarter: 2016Q3

REPORT INFORMATION
  Report Type: Report from Study
  Country: US (occurrence: US)
  Receive Date: 20160831
  Receipt Date: 20160921
  Transmission Date: 20161109
  Serious: Yes (Other)
  Sender: FDA-Public Use
  Company Number: US-AMGEN-USASL2016111624

PATIENT
  Age: 72 Year
  Sex: Female

DRUGS (1)
  1. ENBREL [Suspect]
     Active Substance: ETANERCEPT
     Indication: RHEUMATOID ARTHRITIS
     Dosage: UNK
     Route: 065

REACTIONS (8)
  - Infection [Unknown]
  - Nasopharyngitis [Unknown]
  - Foot fracture [Unknown]
  - Eye infection [Unknown]
  - Malaise [Unknown]
  - Cough [Unknown]
  - Cataract [Unknown]
  - Tendon rupture [Unknown]

NARRATIVE: CASE EVENT DATE: 2016
